FAERS Safety Report 12304954 (Version 1)
Quarter: 2016Q2

REPORT INFORMATION
  Report Type: Spontaneous
  Country: KZ (occurrence: KZ)
  Receive Date: 20160426
  Receipt Date: 20160426
  Transmission Date: 20160815
  Serious: Yes (Death)
  Sender: FDA-Public Use
  Company Number: KZ-ROCHE-1746559

PATIENT
  Sex: Female
  Weight: 20.1 kg

DRUGS (3)
  1. METOTREXATE [Concomitant]
     Active Substance: METHOTREXATE SODIUM
     Indication: JUVENILE IDIOPATHIC ARTHRITIS
     Route: 058
     Dates: start: 201007
  2. METILPREDNISOLONE [Concomitant]
     Active Substance: METHYLPREDNISOLONE
     Indication: JUVENILE IDIOPATHIC ARTHRITIS
     Dosage: 4 MG ONCE A DAY
     Route: 048
     Dates: start: 201407
  3. TOCILIZUMAB [Suspect]
     Active Substance: TOCILIZUMAB
     Indication: JUVENILE IDIOPATHIC ARTHRITIS
     Dosage: 20 MG IV ONCE IN 4 WEEKS
     Route: 041
     Dates: start: 20160408

REACTIONS (1)
  - Acute lymphocytic leukaemia [Fatal]
